FAERS Safety Report 11285565 (Version 3)
Quarter: 2015Q4

REPORT INFORMATION
  Report Type: Report from Study
  Country: DE (occurrence: DE)
  Receive Date: 20150720
  Receipt Date: 20151026
  Transmission Date: 20160304
  Serious: Yes (Death, Hospitalization)
  Sender: FDA-Public Use
  Company Number: DE-ROCHE-1609804

PATIENT
  Age: 43 Year
  Sex: Female
  Weight: 94.3 kg

DRUGS (10)
  1. BEVACIZUMAB [Suspect]
     Active Substance: BEVACIZUMAB
     Route: 042
     Dates: end: 20150622
  2. BEVACIZUMAB [Suspect]
     Active Substance: BEVACIZUMAB
     Route: 042
  3. PACLITAXEL. [Concomitant]
     Active Substance: PACLITAXEL
     Route: 042
     Dates: start: 20141217, end: 20150520
  4. RANITIDIN [Concomitant]
     Active Substance: RANITIDINE HYDROCHLORIDE
     Dosage: ON D1, D8 AND D15
     Route: 042
     Dates: start: 20141217
  5. CLEMASTIN [Concomitant]
     Active Substance: CLEMASTINE
     Dosage: ON D1, D8 AND D15
     Route: 042
     Dates: start: 20141217
  6. PACLITAXEL. [Concomitant]
     Active Substance: PACLITAXEL
     Indication: BREAST CANCER METASTATIC
     Route: 042
     Dates: start: 20141217, end: 20150520
  7. DEXAMETHASON [Concomitant]
     Active Substance: DEXAMETHASONE
     Dosage: ON D1, D8 AND D15
     Route: 042
     Dates: start: 20141217
  8. BEVACIZUMAB [Suspect]
     Active Substance: BEVACIZUMAB
     Indication: BREAST CANCER METASTATIC
     Dosage: MOST RECENT DOSE PRIOR TO SAE ON 22/JUN/2015 PRIOR TO ADVERSE EVENT
     Route: 042
     Dates: start: 20141217, end: 20150526
  9. DEXAMETHASON [Concomitant]
     Active Substance: DEXAMETHASONE
     Indication: PROPHYLAXIS OF NAUSEA AND VOMITING
     Dosage: 2 DF ON D-1, 1DF ON D1 AND D2
     Route: 048
     Dates: start: 20141216
  10. ONDANSETRON [Concomitant]
     Active Substance: ONDANSETRON
     Indication: PROPHYLAXIS OF NAUSEA AND VOMITING
     Dosage: ON D1, D8 AND D15
     Route: 042
     Dates: start: 20141217

REACTIONS (8)
  - Acute hepatic failure [Fatal]
  - Hepatic encephalopathy [Fatal]
  - Hepatorenal syndrome [Fatal]
  - Portal hypertension [Fatal]
  - Diarrhoea [Fatal]
  - Abdominal pain [Fatal]
  - Ascites [Fatal]
  - Nausea [Fatal]

NARRATIVE: CASE EVENT DATE: 20150611
